FAERS Safety Report 10726454 (Version 4)
Quarter: 2015Q1

REPORT INFORMATION
  Report Type: Spontaneous
  Country: JP (occurrence: JP)
  Receive Date: 20150121
  Receipt Date: 20150325
  Transmission Date: 20150721
  Serious: Yes (Life-Threatening, Hospitalization, Other)
  Sender: FDA-Public Use
  Company Number: JP-ASTRAZENECA-2015SE05826

PATIENT
  Age: 29943 Day
  Sex: Female
  Weight: 49 kg

DRUGS (8)
  1. TAKEPRON [Concomitant]
     Active Substance: LANSOPRAZOLE
     Route: 048
  2. PLETAAL [Concomitant]
     Active Substance: CILOSTAZOL
     Route: 048
  3. OLMETEC [Concomitant]
     Active Substance: OLMESARTAN MEDOXOMIL
     Route: 048
  4. ADALAT [Concomitant]
     Active Substance: NIFEDIPINE
     Route: 048
  5. SEROQUEL [Suspect]
     Active Substance: QUETIAPINE FUMARATE
     Indication: BEHAVIOURAL AND PSYCHIATRIC SYMPTOMS OF DEMENTIA
     Route: 048
     Dates: start: 20150107
  6. REMINYL [Concomitant]
     Active Substance: GALANTAMINE
     Route: 048
  7. SEROQUEL [Suspect]
     Active Substance: QUETIAPINE FUMARATE
     Indication: BEHAVIOURAL AND PSYCHIATRIC SYMPTOMS OF DEMENTIA
     Route: 048
     Dates: start: 20150110
  8. RISPERDAL [Concomitant]
     Active Substance: RISPERIDONE
     Route: 048
     Dates: start: 20150107

REACTIONS (7)
  - Fall [Recovered/Resolved]
  - Restlessness [Unknown]
  - Deep vein thrombosis [Recovered/Resolved]
  - Pulmonary embolism [Recovered/Resolved]
  - Depressed level of consciousness [Unknown]
  - Off label use [Recovered/Resolved]
  - Pulmonary infarction [Unknown]

NARRATIVE: CASE EVENT DATE: 20150109
